FAERS Safety Report 4937652-3 (Version None)
Quarter: 2006Q1

REPORT INFORMATION
  Report Type: 
  Country: None (occurrence: None)
  Receive Date: 20060309
  Receipt Date: 20050930
  Transmission Date: 20060701
  Serious: Yes (Hospitalization, Other)
  Sender: FDA-Public Use
  Company Number: US-MERCK-0510USA01287

PATIENT
  Age: 50 Year
  Sex: Male
  Weight: 77 kg

DRUGS (2)
  1. VIOXX [Suspect]
     Indication: EPICONDYLITIS
     Route: 048
     Dates: start: 20000601, end: 20011126
  2. ADVIL [Concomitant]
     Route: 065

REACTIONS (8)
  - ADVERSE EVENT [None]
  - CEREBROVASCULAR ACCIDENT [None]
  - DEPRESSION [None]
  - INSOMNIA [None]
  - LIVER DISORDER [None]
  - MYOCARDIAL INFARCTION [None]
  - PULMONARY EMBOLISM [None]
  - RENAL DISORDER [None]
